FAERS Safety Report 25935957 (Version 2)
Quarter: 2025Q4

REPORT INFORMATION
  Report Type: Spontaneous
  Country: JP (occurrence: JP)
  Receive Date: 20251017
  Receipt Date: 20251024
  Transmission Date: 20260118
  Serious: Yes (Other)
  Sender: ALEXION PHARMACEUTICALS
  Company Number: JP-ASTRAZENECA-202510JPN010369JP

PATIENT
  Age: 67 Year
  Sex: Female

DRUGS (3)
  1. IMFINZI [Suspect]
     Active Substance: DURVALUMAB
     Indication: Non-small cell lung cancer
     Route: 065
  2. IMJUDO [Suspect]
     Active Substance: TREMELIMUMAB\TREMELIMUMAB-ACTL
     Indication: Non-small cell lung cancer
     Route: 065
  3. ABRAXANE [Concomitant]
     Active Substance: PACLITAXEL
     Route: 065

REACTIONS (3)
  - Immune-mediated hypothyroidism [Unknown]
  - Pyrexia [Unknown]
  - Physical deconditioning [Unknown]
